FAERS Safety Report 8324824-3 (Version None)
Quarter: 2012Q2

REPORT INFORMATION
  Report Type: 
  Country: None (occurrence: None)
  Receive Date: 20120501
  Receipt Date: 20120419
  Transmission Date: 20120825
  Serious: No
  Sender: FDA-Public Use
  Company Number: JP-UCBSA-055917

PATIENT
  Age: 45 Year
  Sex: Female

DRUGS (3)
  1. DEPAKENE [Suspect]
     Dates: end: 20120101
  2. KEPPRA [Suspect]
     Route: 048
     Dates: end: 20120221
  3. KEPPRA [Suspect]
     Indication: ENCEPHALITIS HERPES
     Route: 048

REACTIONS (1)
  - WHITE BLOOD CELL COUNT DECREASED [None]
